FAERS Safety Report 5675046-6 (Version None)
Quarter: 2008Q1

REPORT INFORMATION
  Report Type: 
  Country: None (occurrence: None)
  Receive Date: 20080320
  Receipt Date: 20080310
  Transmission Date: 20080703
  Serious: Yes (Other)
  Sender: FDA-Public Use
  Company Number: US-PFIZER INC-2008023091

PATIENT
  Sex: Male
  Weight: 65.3 kg

DRUGS (1)
  1. DILANTIN [Suspect]
     Indication: GRAND MAL CONVULSION

REACTIONS (2)
  - ALCOHOL USE [None]
  - HEPATIC CIRRHOSIS [None]
